FAERS Safety Report 14983635 (Version 1)
Quarter: 2018Q2

REPORT INFORMATION
  Report Type: Spontaneous
  Country: GB (occurrence: GB)
  Receive Date: 20180607
  Receipt Date: 20180607
  Transmission Date: 20180711
  Serious: Yes (Other)
  Sender: FDA-Public Use
  Company Number: GB-PFIZER INC-2018224155

PATIENT
  Age: 18 Year
  Sex: Female

DRUGS (1)
  1. SAYANA PRESS [Suspect]
     Active Substance: MEDROXYPROGESTERONE\MEDROXYPROGESTERONE ACETATE
     Dosage: 104 MG, SINGLE
     Route: 030
     Dates: start: 20150802, end: 20150802

REACTIONS (4)
  - Abscess [Recovering/Resolving]
  - Incorrect route of drug administration [Unknown]
  - Injection site cellulitis [Not Recovered/Not Resolved]
  - Malaise [Unknown]

NARRATIVE: CASE EVENT DATE: 20150802
